FAERS Safety Report 8043243-0 (Version None)
Quarter: 2012Q1

REPORT INFORMATION
  Report Type: 
  Country: None (occurrence: None)
  Receive Date: 20120112
  Receipt Date: 20120109
  Transmission Date: 20120608
  Serious: Yes (Other)
  Sender: FDA-Public Use
  Company Number: BR-JNJFOC-20120103291

PATIENT
  Sex: Female

DRUGS (1)
  1. HALDOL [Suspect]
     Indication: BIPOLAR DISORDER
     Route: 048
     Dates: start: 20110701

REACTIONS (3)
  - MATERNAL EXPOSURE DURING PREGNANCY [None]
  - DEPRESSION [None]
  - CRYING [None]
